FAERS Safety Report 4849641-8 (Version None)
Quarter: 2005Q4

REPORT INFORMATION
  Report Type: 
  Country: None (occurrence: None)
  Receive Date: 20051207
  Receipt Date: 20051129
  Transmission Date: 20060501
  Serious: Yes (Other)
  Sender: FDA-Public Use
  Company Number: MEDI-0003896

PATIENT
  Age: 25 Week
  Sex: Male

DRUGS (1)
  1. SYNAGIS [Suspect]
     Indication: ANTIVIRAL PROPHYLAXIS
     Dosage: 1IN 30 D, INTRAMUSCULAR
     Route: 030

REACTIONS (2)
  - OEDEMA [None]
  - URTICARIA [None]
